FAERS Safety Report 19817016 (Version 2)
Quarter: 2021Q4

REPORT INFORMATION
  Report Type: Spontaneous
  Country: US (occurrence: US)
  Receive Date: 20210910
  Receipt Date: 20211004
  Transmission Date: 20220304
  Serious: Yes (Other)
  Sender: FDA-Public Use
  Company Number: US-MYLANLABS-2021M1058842

PATIENT
  Age: 60 Year
  Sex: Female
  Weight: 61 kg

DRUGS (4)
  1. LEVOTHYROXINE SODIUM [Suspect]
     Active Substance: LEVOTHYROXINE SODIUM
     Indication: Hormone replacement therapy
     Dosage: 88 MICROGRAM, QD, 1 TABLET A DAY
     Route: 048
  2. ZYRTEC [Concomitant]
     Active Substance: CETIRIZINE HYDROCHLORIDE
     Dosage: 10 MILLIGRAM, QD ON OCCASION IN SPRING ALLERGIES, ZYRTEC/ALLERGY (NOT LEGIBLE) FOR 2 MNS
  3. ALEVE [Concomitant]
     Active Substance: NAPROXEN SODIUM
     Dosage: UNK (HAD TOOTH PULLED TOOK ALEVE 2 AND 2 HYDROCODONE ACETAMIN 5-325 MG)
  4. ACETAMINOPHEN\HYDROCODONE [Concomitant]
     Active Substance: ACETAMINOPHEN\HYDROCODONE
     Dosage: UNK (HAD TOOTH PULLED TOOK ALEVE 2 AND 2 HYDROCODONE ACETAMIN 5-325 MG)

REACTIONS (5)
  - Hyperthyroidism [Unknown]
  - Tri-iodothyronine abnormal [Not Recovered/Not Resolved]
  - Psychomotor hyperactivity [Not Recovered/Not Resolved]
  - Weight decreased [Not Recovered/Not Resolved]
  - Drug ineffective [Unknown]

NARRATIVE: CASE EVENT DATE: 20210801
